FAERS Safety Report 5433409-8 (Version None)
Quarter: 2007Q3

REPORT INFORMATION
  Report Type: 
  Country: None (occurrence: None)
  Receive Date: 20070828
  Receipt Date: 20070828
  Transmission Date: 20080115
  Serious: No
  Sender: FDA-Public Use
  Company Number: None

PATIENT
  Sex: Female
  Weight: 64.8644 kg

DRUGS (2)
  1. BAUSCH + LOMB / MOISTURE EYES: 1.0% PROP. GLYCOL/ 0.3% BAUSCH + LOMB [Suspect]
     Indication: DRY EYE
     Dosage: 4 TIMES A DAY OR LESS AS NEEDED OPHTHALMIC
     Route: 047
     Dates: start: 20070216, end: 20070825
  2. BAUSCH + LOMB/ MOISTURE EYES: 1.0% PROP.GLYCOL/0.3% BAUSCH + LOMB [Suspect]

REACTIONS (1)
  - EYE IRRITATION [None]
